FAERS Safety Report 19413281 (Version 1)
Quarter: 2021Q2

REPORT INFORMATION
  Report Type: Spontaneous
  Country: IN (occurrence: IN)
  Receive Date: 20210614
  Receipt Date: 20210614
  Transmission Date: 20210717
  Serious: Yes (Other)
  Sender: FDA-Public Use
  Company Number: IN-FRESENIUS KABI-FK202105971

PATIENT
  Age: 6 Year
  Sex: Male

DRUGS (4)
  1. ETOPOSIDE. [Suspect]
     Active Substance: ETOPOSIDE
     Indication: ATYPICAL TERATOID/RHABDOID TUMOUR OF CNS
     Dosage: IV ETOPOSIDE INJECTION (100 MG/M2, D1?D3; REPEATED EVERY THREE WEEKS)?SYSTEMIC CHEMOTHERAPY WAS STAR
     Route: 042
  2. IFOSFAMIDE. [Suspect]
     Active Substance: IFOSFAMIDE
     Indication: ATYPICAL TERATOID/RHABDOID TUMOUR OF CNS
     Dosage: IV IFOSFAMIDE INJECTION (2 G/M2, D1?D3; REPEATED EVERY THREE WEEKS)?SYSTEMIC CHEMOTHERAPY WAS STARTE
     Route: 042
  3. MESNA. [Concomitant]
     Active Substance: MESNA
     Indication: URINARY TRACT DISORDER PROPHYLAXIS
     Dosage: SYSTEMIC CHEMOTHERAPY WAS STARTED WITH ICE REGIMEN, REPEATED EVERY THREE WEEKS ALONG WITH MESNA
     Route: 065
  4. CARBOPLATIN (MANUFACTURER UNKNOWN) [Suspect]
     Active Substance: CARBOPLATIN
     Indication: ATYPICAL TERATOID/RHABDOID TUMOUR OF CNS
     Dosage: IV CARBOPLATIN INJECTION (500 MG/M2, D3; REPEATED EVERY THREE WEEKS)?SYSTEMIC CHEMOTHERAPY WAS START
     Route: 042

REACTIONS (5)
  - Leukopenia [Unknown]
  - Neutropenia [Unknown]
  - Varicella zoster virus infection [Unknown]
  - Thrombocytopenia [Unknown]
  - Anaemia [Unknown]
